FAERS Safety Report 9218735 (Version 1)
Quarter: 2013Q2

REPORT INFORMATION
  Report Type: Spontaneous
  Country: US (occurrence: None)
  Receive Date: 20130405
  Receipt Date: 20130405
  Transmission Date: 20140414
  Serious: Yes (Hospitalization)
  Sender: FDA-Public Use
  Company Number: None

PATIENT
  Age: 41 Year
  Sex: Female
  Weight: 68.95 kg

DRUGS (1)
  1. MACROBID 100 MG GENERIC [Suspect]
     Indication: URINARY TRACT INFECTION
     Dosage: 1 PILL 2X DAY PO
     Dates: start: 20130403, end: 20130403

REACTIONS (3)
  - Neuropathy peripheral [None]
  - Muscular weakness [None]
  - Dyspnoea [None]
